FAERS Safety Report 5173285-4 (Version None)
Quarter: 2006Q4

REPORT INFORMATION
  Report Type: 
  Country: None (occurrence: None)
  Receive Date: 20061206
  Receipt Date: 20061121
  Transmission Date: 20070319
  Serious: Yes (Hospitalization)
  Sender: FDA-Public Use
  Company Number: T200601354

PATIENT
  Sex: Female

DRUGS (1)
  1. OXYCODONE/ACETAMINOPHEN(OXYCODONE HYDROCHLORIDE HCL, ACETAMINOPHEN) TA [Suspect]
     Indication: PAIN IN EXTREMITY
     Dosage: 1 TABLET TID, ORAL
     Route: 048

REACTIONS (2)
  - ABDOMINAL PAIN [None]
  - HEPATIC ENZYME INCREASED [None]
